FAERS Safety Report 7125091 (Version 23)
Quarter: 2015Q2

REPORT INFORMATION
  Report Type: Spontaneous
  Country: US (occurrence: US)
  Receive Date: 20090922
  Receipt Date: 20150428
  Transmission Date: 20150821
  Serious: Yes (Other)
  Sender: FDA-Public Use
  Company Number: PHEH2009US10830

PATIENT
  Sex: Female

DRUGS (27)
  1. XOPENEX [Suspect]
     Active Substance: LEVALBUTEROL HYDROCHLORIDE
     Indication: PRODUCT USED FOR UNKNOWN INDICATION
     Dosage: 0.63 MG, BID
     Route: 065
  2. ARIMIDEX [Concomitant]
     Active Substance: ANASTROZOLE
     Indication: PRODUCT USED FOR UNKNOWN INDICATION
     Route: 065
  3. ZOMETA [Suspect]
     Active Substance: ZOLEDRONIC ACID
     Indication: METASTASES TO BONE
     Dosage: 4 MG
     Route: 042
     Dates: start: 2004
  4. SYMBICORT [Concomitant]
     Active Substance: BUDESONIDE\FORMOTEROL FUMARATE DIHYDRATE
     Indication: PRODUCT USED FOR UNKNOWN INDICATION
     Route: 065
  5. METFORMIN [Concomitant]
     Active Substance: METFORMIN HYDROCHLORIDE
     Indication: PRODUCT USED FOR UNKNOWN INDICATION
     Route: 065
  6. TAXOL [Concomitant]
     Active Substance: PACLITAXEL
     Indication: PRODUCT USED FOR UNKNOWN INDICATION
     Route: 065
  7. AMBIEN [Concomitant]
     Active Substance: ZOLPIDEM TARTRATE
     Indication: PRODUCT USED FOR UNKNOWN INDICATION
     Route: 065
  8. KEFLEX [Concomitant]
     Active Substance: CEPHALEXIN
     Indication: PRODUCT USED FOR UNKNOWN INDICATION
     Dosage: 500 MG, TID
     Route: 065
  9. FEMARA [Concomitant]
     Active Substance: LETROZOLE
     Indication: PRODUCT USED FOR UNKNOWN INDICATION
     Dosage: 2.5 MG, DAILY
     Route: 048
  10. ZOCOR [Concomitant]
     Active Substance: SIMVASTATIN
     Indication: PRODUCT USED FOR UNKNOWN INDICATION
     Route: 065
  11. OXYCODONE [Concomitant]
     Active Substance: OXYCODONE
     Indication: PRODUCT USED FOR UNKNOWN INDICATION
     Route: 065
  12. GEMZAR [Concomitant]
     Active Substance: GEMCITABINE HYDROCHLORIDE
     Indication: PRODUCT USED FOR UNKNOWN INDICATION
     Route: 065
  13. CARBOPLATIN. [Concomitant]
     Active Substance: CARBOPLATIN
     Indication: PRODUCT USED FOR UNKNOWN INDICATION
     Route: 065
  14. CISPLATIN. [Concomitant]
     Active Substance: CISPLATIN
     Indication: PRODUCT USED FOR UNKNOWN INDICATION
     Route: 065
  15. DIOVAN [Concomitant]
     Active Substance: VALSARTAN
     Indication: PRODUCT USED FOR UNKNOWN INDICATION
     Route: 065
  16. CYCLOBENZAPRINE [Concomitant]
     Active Substance: CYCLOBENZAPRINE
     Indication: PRODUCT USED FOR UNKNOWN INDICATION
     Dosage: 10 MG, UNK
     Route: 048
  17. LISINOPRIL. [Concomitant]
     Active Substance: LISINOPRIL
     Indication: PRODUCT USED FOR UNKNOWN INDICATION
     Route: 065
  18. TAMOXIFEN [Concomitant]
     Active Substance: TAMOXIFEN
     Indication: PRODUCT USED FOR UNKNOWN INDICATION
     Route: 065
  19. NAPROXEN. [Concomitant]
     Active Substance: NAPROXEN
     Indication: PRODUCT USED FOR UNKNOWN INDICATION
     Route: 065
  20. CEPHALEXIN. [Concomitant]
     Active Substance: CEPHALEXIN
     Indication: PRODUCT USED FOR UNKNOWN INDICATION
     Route: 065
  21. ORAL CONTRACEPTIVE NOS [Concomitant]
     Active Substance: UNSPECIFIED INGREDIENT
     Indication: PRODUCT USED FOR UNKNOWN INDICATION
     Route: 065
  22. FASLODEX [Concomitant]
     Active Substance: FULVESTRANT
     Indication: PRODUCT USED FOR UNKNOWN INDICATION
     Route: 065
  23. ZOMETA [Suspect]
     Active Substance: ZOLEDRONIC ACID
     Indication: BREAST CANCER METASTATIC
  24. CIPROFLOXACIN. [Concomitant]
     Active Substance: CIPROFLOXACIN
     Indication: PRODUCT USED FOR UNKNOWN INDICATION
     Route: 065
  25. CLINDAMYCIN [Concomitant]
     Active Substance: CLINDAMYCIN\CLINDAMYCIN PHOSPHATE
     Indication: PRODUCT USED FOR UNKNOWN INDICATION
     Route: 065
  26. PENICILLIN [Concomitant]
     Active Substance: PENICILLIN
     Indication: PRODUCT USED FOR UNKNOWN INDICATION
     Route: 065
  27. TRAMADOL [Concomitant]
     Active Substance: TRAMADOL
     Indication: PRODUCT USED FOR UNKNOWN INDICATION
     Dosage: 50 MG, UNK
     Route: 048

REACTIONS (136)
  - Adrenal disorder [Unknown]
  - Osteomyelitis [Unknown]
  - Malignant neoplasm progression [Unknown]
  - Fall [Unknown]
  - Hypercholesterolaemia [Unknown]
  - Contusion [Unknown]
  - Insomnia [Unknown]
  - Breast calcifications [Unknown]
  - Back pain [Unknown]
  - Chest pain [Unknown]
  - Tooth discolouration [Unknown]
  - Paraesthesia [Unknown]
  - Left atrial dilatation [Unknown]
  - Snoring [Unknown]
  - Pharyngeal erythema [Unknown]
  - Musculoskeletal stiffness [Unknown]
  - Atelectasis [Unknown]
  - Bone marrow oedema [Unknown]
  - Acquired diaphragmatic eventration [Unknown]
  - Periodontitis [Unknown]
  - Muscle strain [Unknown]
  - Anaemia [Unknown]
  - Sinusitis [Unknown]
  - Cardiomegaly [Unknown]
  - Gastrooesophageal reflux disease [Unknown]
  - Chest discomfort [Unknown]
  - Hypoaesthesia [Unknown]
  - Conjunctivitis [Unknown]
  - Speech disorder [Unknown]
  - Nasal mucosal disorder [Unknown]
  - Pyrexia [Unknown]
  - Spinal osteoarthritis [Unknown]
  - Road traffic accident [Unknown]
  - Upper limb fracture [Unknown]
  - Neck pain [Unknown]
  - Rheumatoid arthritis [Unknown]
  - Cough [Unknown]
  - Mitral valve calcification [Unknown]
  - Hepatic steatosis [Unknown]
  - Tremor [Unknown]
  - Hypertensive heart disease [Unknown]
  - Uveitis [Recovered/Resolved]
  - Sleep apnoea syndrome [Unknown]
  - Tooth infection [Unknown]
  - Orthopnoea [Unknown]
  - Nasal congestion [Unknown]
  - Eye swelling [Unknown]
  - Chills [Unknown]
  - Intraocular melanoma [Unknown]
  - Humerus fracture [Unknown]
  - Dyspnoea [Unknown]
  - Trismus [Unknown]
  - Lymphadenopathy mediastinal [Unknown]
  - Rales [Unknown]
  - Wrist fracture [Unknown]
  - Aortic valve sclerosis [Unknown]
  - Osteoarthritis [Unknown]
  - Myopia [Unknown]
  - Presbyopia [Unknown]
  - Chronic obstructive pulmonary disease [Unknown]
  - Pain in extremity [Unknown]
  - Joint injury [Unknown]
  - Bone cyst [Unknown]
  - Emotional distress [Unknown]
  - Musculoskeletal pain [Unknown]
  - Breath sounds abnormal [Unknown]
  - Confusional state [Unknown]
  - Toothache [Unknown]
  - Gingivitis [Unknown]
  - Neoplasm progression [Unknown]
  - Conduction disorder [Unknown]
  - Iritis [Recovered/Resolved]
  - Pain [Unknown]
  - Anxiety [Unknown]
  - Bronchitis [Unknown]
  - Bronchial hyperreactivity [Unknown]
  - Productive cough [Unknown]
  - Hand fracture [Unknown]
  - Myocardial ischaemia [Unknown]
  - Alopecia [Unknown]
  - Dyspnoea paroxysmal nocturnal [Unknown]
  - Dental caries [Unknown]
  - Pneumonia [Unknown]
  - Cataract [Unknown]
  - Myalgia [Unknown]
  - Discomfort [Unknown]
  - Meniscus injury [Unknown]
  - Upper respiratory tract infection [Unknown]
  - Facial pain [Unknown]
  - Tympanic membrane disorder [Unknown]
  - Photophobia [Unknown]
  - Joint dislocation [Unknown]
  - Gingival oedema [Unknown]
  - Peripheral swelling [Unknown]
  - Granuloma [Unknown]
  - Arthritis [Unknown]
  - Visual acuity reduced [Unknown]
  - Bursitis [Unknown]
  - Fibromyalgia [Unknown]
  - Rhonchi [Unknown]
  - Scoliosis [Unknown]
  - Mydriasis [Unknown]
  - Astigmatism [Unknown]
  - Palpitations [Unknown]
  - Arthralgia [Unknown]
  - Headache [Unknown]
  - Swelling face [Unknown]
  - Pleural fibrosis [Unknown]
  - Exposed bone in jaw [Unknown]
  - Nocturia [Unknown]
  - Intervertebral disc space narrowing [Unknown]
  - Electrocardiogram T wave abnormal [Unknown]
  - Pain in jaw [Unknown]
  - Tooth loss [Unknown]
  - Burns second degree [Unknown]
  - Joint effusion [Unknown]
  - Fatigue [Unknown]
  - Wheezing [Unknown]
  - Kyphosis [Unknown]
  - Facial bones fracture [Unknown]
  - Purulent discharge [Unknown]
  - Soft tissue disorder [Unknown]
  - Oedema peripheral [Unknown]
  - Nasal turbinate abnormality [Unknown]
  - Asthenia [Unknown]
  - Osteonecrosis of jaw [Unknown]
  - Oesophagitis [Unknown]
  - Bone lesion [Unknown]
  - Eye irritation [Unknown]
  - Arteriosclerosis [Unknown]
  - Left ventricular hypertrophy [Unknown]
  - Diastolic dysfunction [Unknown]
  - Chondropathy [Unknown]
  - Arrhythmia [Recovered/Resolved]
  - Breathing-related sleep disorder [Unknown]
  - Cerumen impaction [Unknown]

NARRATIVE: CASE EVENT DATE: 2010
